FAERS Safety Report 6495088-0 (Version None)
Quarter: 2009Q4

REPORT INFORMATION
  Report Type: 
  Country: None (occurrence: None)
  Receive Date: 20091214
  Receipt Date: 20090428
  Transmission Date: 20100525
  Serious: Yes (Other)
  Sender: FDA-Public Use
  Company Number: US-BRISTOL-MYERS SQUIBB COMPANY-14606073

PATIENT
  Sex: Female

DRUGS (1)
  1. ABILIFY [Suspect]
     Dates: start: 20060427, end: 20090101

REACTIONS (1)
  - DYSTONIA [None]
